FAERS Safety Report 15504790 (Version 1)
Quarter: 2018Q4

REPORT INFORMATION
  Report Type: Spontaneous
  Country: US (occurrence: US)
  Receive Date: 20181016
  Receipt Date: 20181016
  Transmission Date: 20190205
  Serious: Yes (Hospitalization)
  Sender: FDA-Public Use
  Company Number: None

PATIENT
  Age: 61 Year
  Sex: Male

DRUGS (9)
  1. MYCOPHENOLATE [Suspect]
     Active Substance: MYCOPHENOLIC ACID
     Indication: HEART TRANSPLANT
     Route: 048
     Dates: start: 20121005
  2. MULTI VIATMIN [Concomitant]
  3. TRAMADOL. [Concomitant]
     Active Substance: TRAMADOL
  4. FOLIC ACID. [Concomitant]
     Active Substance: FOLIC ACID
  5. MAGNESIUM -OX [Concomitant]
  6. LIPITOR [Concomitant]
     Active Substance: ATORVASTATIN CALCIUM
  7. DIOVAN [Concomitant]
     Active Substance: VALSARTAN
  8. VITAMIN D [Concomitant]
     Active Substance: CHOLECALCIFEROL
  9. TACROLIMUS. [Concomitant]
     Active Substance: TACROLIMUS

REACTIONS (3)
  - Concussion [None]
  - Road traffic accident [None]
  - Ligament sprain [None]

NARRATIVE: CASE EVENT DATE: 20180915
